FAERS Safety Report 9175704 (Version 3)
Quarter: 2012Q4

REPORT INFORMATION
  Report Type: 
  Country: US (occurrence: US)
  Receive Date: 20120911
  Receipt Date: 20121031
  Transmission Date: 20130627
  Serious: Yes (Hospitalization, Other)
  Sender: FDA-Public Use
  Company Number: US-RB-044175-12

PATIENT
  Age: 52 Year
  Sex: Female

DRUGS (8)
  1. SUBOXONE TABLET [Suspect]
     Indication: DRUG DEPENDENCE
     Route: 060
     Dates: start: 2009, end: 201005
  2. GENERIC BUPRENORPHINE [Suspect]
     Route: 060
     Dates: start: 201006, end: 201107
  3. GENERIC BUPRENORPHINE [Suspect]
     Indication: DRUG DEPENDENCE
     Dosage: Tapering doses
     Route: 060
     Dates: start: 201107
  4. ZANTAC [Concomitant]
     Indication: GASTROINTESTINAL DISORDER
     Dosage: 150 mg daily
     Route: 065
  5. ZANTAC [Concomitant]
     Indication: IRRITABLE BOWEL SYNDROME
     Dosage: 150 mg daily
     Route: 065
  6. PHENERGAN [Concomitant]
     Indication: NAUSEA
     Dosage: Dosing details unknown
     Route: 065
  7. ZYRTEC [Concomitant]
     Indication: MULTIPLE ALLERGIES
     Route: 065
  8. ZANAFLEX [Concomitant]
     Indication: MUSCLE RELAXANT THERAPY
     Dosage: Dosing details unknown
     Route: 065

REACTIONS (7)
  - Intestinal obstruction [Recovered/Resolved]
  - Pneumonia [Recovered/Resolved]
  - Abdominal hernia [Recovered/Resolved]
  - Vomiting [Recovered/Resolved]
  - Pain [Recovered/Resolved]
  - Pyrexia [Recovered/Resolved]
  - Wrong technique in drug usage process [Not Recovered/Not Resolved]
